FAERS Safety Report 11357012 (Version 1)
Quarter: 2015Q3

REPORT INFORMATION
  Report Type: Spontaneous
  Country: US (occurrence: US)
  Receive Date: 20150803
  Receipt Date: 20150803
  Transmission Date: 20151125
  Serious: No
  Sender: FDA-Public Use
  Company Number: US-ELI_LILLY_AND_COMPANY-US201306004630

PATIENT
  Sex: Female

DRUGS (6)
  1. VISTARIL [Concomitant]
     Active Substance: HYDROXYZINE PAMOATE
  2. ZYPREXA [Suspect]
     Active Substance: OLANZAPINE
     Indication: PANIC ATTACK
  3. XANAX [Concomitant]
     Active Substance: ALPRAZOLAM
     Dosage: 2.5 MG, UNK
  4. ZYPREXA [Suspect]
     Active Substance: OLANZAPINE
     Indication: ANXIETY
     Dosage: 2.5 MG, EACH EVENING
     Dates: start: 20130612
  5. ZYPREXA [Suspect]
     Active Substance: OLANZAPINE
     Indication: POST-TRAUMATIC STRESS DISORDER
  6. ZYPREXA [Suspect]
     Active Substance: OLANZAPINE
     Indication: INSOMNIA

REACTIONS (10)
  - Vision blurred [Unknown]
  - Dizziness [Unknown]
  - Agitation [Unknown]
  - Back pain [Unknown]
  - Paraesthesia [Unknown]
  - Headache [Unknown]
  - Orthostatic hypotension [Unknown]
  - Fatigue [Unknown]
  - Neurological symptom [Unknown]
  - Off label use [Not Recovered/Not Resolved]
